FAERS Safety Report 16785947 (Version 2)
Quarter: 2020Q1

REPORT INFORMATION
  Report Type: Report from Study
  Country: CA (occurrence: CA)
  Receive Date: 20190909
  Receipt Date: 20200212
  Transmission Date: 20200409
  Serious: Yes (Other)
  Sender: FDA-Public Use
  Company Number: CA-PFIZER INC-2019384684

PATIENT
  Age: 45 Year
  Sex: Female
  Weight: 126 kg

DRUGS (30)
  1. METHOTREXATE SODIUM. [Suspect]
     Active Substance: METHOTREXATE SODIUM
     Indication: SYSTEMIC LUPUS ERYTHEMATOSUS
     Dosage: 20 MG, UNK
     Route: 065
  2. BENADRYL [Concomitant]
     Active Substance: DIPHENHYDRAMINE HYDROCHLORIDE
     Indication: PREMEDICATION
     Dosage: 50 MG, UNK
     Route: 048
  3. BENLYSTA [Suspect]
     Active Substance: BELIMUMAB
     Dosage: UNK
     Route: 042
  4. BENLYSTA [Suspect]
     Active Substance: BELIMUMAB
     Dosage: UNK
     Route: 042
  5. BENLYSTA [Suspect]
     Active Substance: BELIMUMAB
     Dosage: 1090.0 MG, UNK
     Route: 042
  6. NORVASC [Concomitant]
     Active Substance: AMLODIPINE BESYLATE
     Dosage: 10.0 MG, 1 EVERY 1 DAY(S)
     Route: 065
  7. MELOXICAM. [Concomitant]
     Active Substance: MELOXICAM
     Dosage: UNK
  8. BENLYSTA [Suspect]
     Active Substance: BELIMUMAB
     Dosage: UNK
     Route: 042
  9. BENLYSTA [Suspect]
     Active Substance: BELIMUMAB
     Dosage: 1090.0 MG, UNK
     Route: 042
  10. DOMPERIDONE [Concomitant]
     Active Substance: DOMPERIDONE
     Dosage: 10.0 MG, 2 EVERY 1 DAY(S)
     Route: 065
  11. FOLIC ACID. [Concomitant]
     Active Substance: FOLIC ACID
     Indication: SYSTEMIC LUPUS ERYTHEMATOSUS
     Dosage: UNK UNK, 1 EVERY 1 DAY(S)
     Route: 048
  12. SYNTHROID [Concomitant]
     Active Substance: LEVOTHYROXINE SODIUM
     Dosage: UNK
     Route: 065
  13. ZOPICLONE [Concomitant]
     Active Substance: ZOPICLONE
     Dosage: 17.0 MG, UNK
     Route: 065
  14. BENLYSTA [Suspect]
     Active Substance: BELIMUMAB
     Indication: SYSTEMIC LUPUS ERYTHEMATOSUS
     Dosage: 1000 MG, CYCLIC AT 0.2.4 WEEKS AND THEN MONTHLY
     Route: 042
     Dates: start: 20120302
  15. BENLYSTA [Suspect]
     Active Substance: BELIMUMAB
     Dosage: 1250.0 MG, UNK
     Route: 042
  16. ADALAT CC [Concomitant]
     Active Substance: NIFEDIPINE
     Dosage: 30.0 MG, 1 EVERY 1 DAY(S)
     Route: 065
  17. BENLYSTA [Suspect]
     Active Substance: BELIMUMAB
     Dosage: 1090.0 MG, UNK
     Route: 042
  18. BENLYSTA [Suspect]
     Active Substance: BELIMUMAB
     Dosage: UNK
     Route: 042
  19. ADALAT CC [Concomitant]
     Active Substance: NIFEDIPINE
     Indication: HYPERTENSION
     Dosage: 30.0 MG, 1 EVERY 1 DAY(S)
     Route: 048
  20. PREDNISONE. [Concomitant]
     Active Substance: PREDNISONE
     Indication: SYSTEMIC LUPUS ERYTHEMATOSUS
     Dosage: 5.0 MG, 1 VERY 1 DAY(S)
     Route: 048
  21. TYLENOL [Concomitant]
     Active Substance: ACETAMINOPHEN
     Indication: PREMEDICATION
     Dosage: 650 MG, UNK
     Route: 065
  22. CALCIUM [Concomitant]
     Active Substance: CALCIUM
     Indication: SYSTEMIC LUPUS ERYTHEMATOSUS
     Dosage: 500.0 MG, 3 EVERY 1 DAY(S)
     Route: 065
  23. COLACE [Concomitant]
     Active Substance: DOCUSATE SODIUM
     Dosage: UNK
     Route: 065
  24. NEXIUM [Concomitant]
     Active Substance: ESOMEPRAZOLE MAGNESIUM
     Dosage: 40.0 MG, 1 EVERY 1 DAY(S)
     Route: 065
  25. PREDNISONE. [Concomitant]
     Active Substance: PREDNISONE
     Dosage: 7.5 MG, DAILY
     Route: 048
  26. BENLYSTA [Suspect]
     Active Substance: BELIMUMAB
     Dosage: 1250.0 MG, UNK
     Route: 042
  27. ACTONEL [Concomitant]
     Active Substance: RISEDRONATE SODIUM
     Dosage: 35.0 MG, UNK
     Route: 065
  28. METHOTREXATE SODIUM. [Suspect]
     Active Substance: METHOTREXATE SODIUM
     Indication: SYSTEMIC LUPUS ERYTHEMATOSUS
     Dosage: 8 DF, UNK
     Route: 048
  29. BENLYSTA [Suspect]
     Active Substance: BELIMUMAB
     Dosage: 1250.0 MG, UNK
     Route: 042
  30. TECTA [Concomitant]
     Active Substance: PANTOPRAZOLE MAGNESIUM
     Dosage: UNK
     Route: 065

REACTIONS (35)
  - Lower respiratory tract infection [Recovered/Resolved]
  - Precancerous lesion [Recovered/Resolved]
  - Acrochordon [Unknown]
  - Arthralgia [Unknown]
  - Cyst [Recovered/Resolved]
  - Gastroenteritis [Recovered/Resolved]
  - Malaise [Not Recovered/Not Resolved]
  - Urticaria [Recovered/Resolved]
  - Arthropathy [Not Recovered/Not Resolved]
  - Disability [Not Recovered/Not Resolved]
  - Pain in extremity [Unknown]
  - Ill-defined disorder [Not Recovered/Not Resolved]
  - Smear cervix abnormal [Unknown]
  - Arthritis [Not Recovered/Not Resolved]
  - Blood cholesterol increased [Unknown]
  - Erythema [Recovered/Resolved]
  - Insomnia [Not Recovered/Not Resolved]
  - Sinusitis [Recovered/Resolved]
  - Hernia [Not Recovered/Not Resolved]
  - Sinusitis [Recovered/Resolved]
  - Photosensitivity reaction [Not Recovered/Not Resolved]
  - Fatigue [Not Recovered/Not Resolved]
  - Flushing [Recovered/Resolved]
  - Melanocytic naevus [Not Recovered/Not Resolved]
  - Contusion [Recovered/Resolved]
  - Peripheral swelling [Unknown]
  - Skin discolouration [Unknown]
  - Initial insomnia [Not Recovered/Not Resolved]
  - Uterine prolapse [Unknown]
  - Muscle spasms [Recovered/Resolved]
  - Nausea [Recovering/Resolving]
  - Oral herpes [Unknown]
  - Sinusitis [Recovered/Resolved]
  - Sinusitis [Recovered/Resolved]
  - Tremor [Recovering/Resolving]

NARRATIVE: CASE EVENT DATE: 20120303
